FAERS Safety Report 8932539 (Version 1)
Quarter: 2012Q4

REPORT INFORMATION
  Report Type: Spontaneous
  Country: US (occurrence: None)
  Receive Date: 20121121
  Receipt Date: 20121121
  Transmission Date: 20130627
  Serious: Yes (Death)
  Sender: FDA-Public Use
  Company Number: None

PATIENT
  Age: 36 Year
  Sex: Female
  Weight: 56.7 kg

DRUGS (2)
  1. VYVANSE/SHIRE MEDICAL [Suspect]
     Indication: ADHD
     Dates: start: 20110113
  2. VYVANSE/SHIRE MEDICAL [Suspect]
     Indication: ADHD
     Dosage: 60 mg 1 qd 2-14-11
     Dates: start: 20110214

REACTIONS (2)
  - Sudden death [None]
  - Cardiac arrest [None]
